FAERS Safety Report 19100549 (Version 1)
Quarter: 2021Q2

REPORT INFORMATION
  Report Type: Other
  Country: CN (occurrence: CN)
  Receive Date: 20210407
  Receipt Date: 20210407
  Transmission Date: 20210717
  Serious: Yes (Other)
  Sender: FDA-Public Use
  Company Number: CN-ROCHE-2798125

PATIENT

DRUGS (3)
  1. CARBOPLATIN. [Suspect]
     Active Substance: CARBOPLATIN
     Indication: HER2 POSITIVE BREAST CANCER
     Dosage: 200?400MG/M2; ON DAY1 OF CHEMOTHERAPY CYCLE
     Route: 041
  2. DOCETAXEL. [Suspect]
     Active Substance: DOCETAXEL
     Indication: HER2 POSITIVE BREAST CANCER
     Dosage: 3 WEEKS AS A CYCLE, AND 6 CYCLES OF TREATMENT
     Route: 041
  3. PERTUZUMAB. [Suspect]
     Active Substance: PERTUZUMAB
     Indication: HER2 POSITIVE BREAST CANCER
     Dosage: INITIAL DOSE WAS 840 MG, THEN AT 420 MG EVERY 3 WEEKS; 21DAY WAS A CYCLE, THE TREATMENT WAS 6 CYCLES
     Route: 042

REACTIONS (8)
  - Abdominal pain [Unknown]
  - Nausea [Unknown]
  - Constipation [Unknown]
  - Cardiotoxicity [Unknown]
  - Vomiting [Unknown]
  - Diarrhoea [Unknown]
  - Hepatic function abnormal [Unknown]
  - White blood cell count decreased [Unknown]
